FAERS Safety Report 4505279-3 (Version None)
Quarter: 2004Q4

REPORT INFORMATION
  Report Type: 
  Country: None (occurrence: None)
  Receive Date: 20041116
  Receipt Date: 20041103
  Transmission Date: 20050328
  Serious: Yes (Hospitalization, Other)
  Sender: FDA-Public Use
  Company Number: 2004079435

PATIENT
  Age: 82 Year
  Sex: Male
  Weight: 70 kg

DRUGS (11)
  1. NEURONTIN [Suspect]
     Indication: NEUROPATHY
     Dosage: 900 MG (300 MG, 3 IN 1 D), ORAL
     Route: 048
     Dates: start: 20030930, end: 20041015
  2. TRAMADOL HCL [Suspect]
     Indication: NEUROPATHY
     Dosage: 300 MG (150 MG, 2 IN 1 D), ORAL
     Route: 048
     Dates: start: 20030101, end: 20041015
  3. DIGOXIN [Concomitant]
  4. OMEPRAZOLE [Concomitant]
  5. SPASFON (PHLOROGLUCINOL,  TRIMETHYLPHLORGLUCINOL) [Concomitant]
  6. CARBOSYLANE (DIMETICONE) [Concomitant]
  7. MACROGOL (MACROGOL) [Concomitant]
  8. FLUOXETINE HYDROCHLORIDE [Concomitant]
  9. LANSOPRAZOLE [Concomitant]
  10. OXAZEPAM [Concomitant]
  11. CALCIUM CARBONATE (CALCIUM CARBONATE) [Concomitant]

REACTIONS (6)
  - BEDRIDDEN [None]
  - CONFUSIONAL STATE [None]
  - DELIRIUM [None]
  - DEPRESSED LEVEL OF CONSCIOUSNESS [None]
  - DRUG INTERACTION [None]
  - HALLUCINATION, VISUAL [None]
